FAERS Safety Report 7302483-6 (Version None)
Quarter: 2011Q1

REPORT INFORMATION
  Report Type: 
  Country: None (occurrence: None)
  Receive Date: 20110218
  Receipt Date: 20110215
  Transmission Date: 20110831
  Serious: No
  Sender: FDA-Public Use
  Company Number: US-PFIZER INC-2011033964

PATIENT
  Sex: Female
  Weight: 91 kg

DRUGS (4)
  1. LIPITOR [Concomitant]
     Dosage: UNK
  2. CALAN [Suspect]
     Indication: BLOOD PRESSURE ABNORMAL
     Dosage: 180 MG, 2X/DAY
     Route: 048
     Dates: start: 20100101, end: 20100101
  3. SYNTHROID [Concomitant]
     Dosage: UNK
  4. LEXAPRO [Concomitant]
     Dosage: UNK

REACTIONS (2)
  - ABDOMINAL DISCOMFORT [None]
  - HEADACHE [None]
